FAERS Safety Report 16935102 (Version 2)
Quarter: 2025Q2

REPORT INFORMATION
  Report Type: Spontaneous
  Country: US (occurrence: US)
  Receive Date: 20191018
  Receipt Date: 20250404
  Transmission Date: 20250716
  Serious: Yes (Hospitalization, Other)
  Sender: ROCHE
  Company Number: US-ROCHE-2438396

PATIENT
  Age: 53 Year
  Sex: Female

DRUGS (1)
  1. OCREVUS [Suspect]
     Active Substance: OCRELIZUMAB
     Indication: Relapsing multiple sclerosis
     Route: 042
     Dates: start: 201710

REACTIONS (5)
  - Arthritis infective [Recovered/Resolved]
  - Upper respiratory tract infection [Unknown]
  - Respiratory distress [Unknown]
  - Bronchitis [Unknown]
  - Sepsis [Unknown]

NARRATIVE: CASE EVENT DATE: 20180301
